FAERS Safety Report 25025733 (Version 1)
Quarter: 2025Q1

REPORT INFORMATION
  Report Type: Spontaneous
  Country: IS (occurrence: IS)
  Receive Date: 20250301
  Receipt Date: 20250301
  Transmission Date: 20250408
  Serious: Yes (Other)
  Sender: GLAXOSMITHKLINE
  Company Number: None

PATIENT

DRUGS (10)
  1. LAMICTAL [Suspect]
     Active Substance: LAMOTRIGINE
     Indication: Product used for unknown indication
     Route: 065
  2. OZEMPIC [Suspect]
     Active Substance: SEMAGLUTIDE
     Indication: Obesity
     Route: 065
  3. Litarex [Concomitant]
     Indication: Product used for unknown indication
     Route: 065
  4. Sertral [Concomitant]
     Indication: Product used for unknown indication
     Route: 065
  5. ETORICOXIB [Concomitant]
     Active Substance: ETORICOXIB
     Indication: Product used for unknown indication
     Route: 065
  6. NORGESIC [Concomitant]
     Active Substance: ASPIRIN\CAFFEINE\ORPHENADRINE CITRATE
     Indication: Product used for unknown indication
     Route: 065
  7. Furix [Concomitant]
     Indication: Product used for unknown indication
     Route: 065
  8. ISOPTIN [Concomitant]
     Active Substance: VERAPAMIL HYDROCHLORIDE
     Indication: Product used for unknown indication
     Route: 065
  9. TERBINAFINE [Concomitant]
     Active Substance: TERBINAFINE
     Indication: Product used for unknown indication
     Route: 065
  10. ESOMEPRAZOLE [Concomitant]
     Active Substance: ESOMEPRAZOLE
     Indication: Product used for unknown indication
     Route: 065

REACTIONS (12)
  - Diarrhoea [Recovering/Resolving]
  - Vomiting [Recovering/Resolving]
  - Muscle spasms [Recovering/Resolving]
  - Nausea [Recovering/Resolving]
  - Abnormal faeces [Recovering/Resolving]
  - Bradyphrenia [Recovering/Resolving]
  - Decreased appetite [Recovering/Resolving]
  - Altered state of consciousness [Recovering/Resolving]
  - Malaise [Recovering/Resolving]
  - Tinnitus [Recovering/Resolving]
  - Illusion [Recovering/Resolving]
  - Abdominal pain upper [Recovering/Resolving]
